FAERS Safety Report 9250405 (Version 1)
Quarter: 2013Q1

REPORT INFORMATION
  Report Type: Spontaneous
  Country: US (occurrence: None)
  Receive Date: 20130305
  Receipt Date: 20130305
  Transmission Date: 20140127
  Serious: Yes (Other)
  Sender: FDA-Public Use
  Company Number: 163-21880-12042198

PATIENT
  Age: 42 Year
  Sex: Male
  Weight: 77.11 kg

DRUGS (7)
  1. REVLIMID [Suspect]
     Indication: PLASMA CELL MYELOMA
     Dosage: 15 MG, DAILY X 21 DAYS, PO
     Route: 048
     Dates: start: 20060908
  2. ADDERALL (OBETROL) [Concomitant]
  3. AMBIEN (ZOLPIDEM TARTRATE) [Concomitant]
  4. BENADRYL (DIPHENHYDRAMINE HYDROCHLORIDE) [Concomitant]
  5. LORAZEPAM (LORAZEPAM) [Concomitant]
  6. MORPHINE [Concomitant]
  7. VITAMINS [Concomitant]

REACTIONS (2)
  - Rectal haemorrhage [None]
  - Epistaxis [None]
